FAERS Safety Report 5546017-5 (Version None)
Quarter: 2007Q4

REPORT INFORMATION
  Report Type: 
  Country: None (occurrence: None)
  Receive Date: 20071211
  Receipt Date: 20071015
  Transmission Date: 20080405
  Serious: Yes (Hospitalization)
  Sender: FDA-Public Use
  Company Number: US-BRISTOL-MYERS SQUIBB COMPANY-13942354

PATIENT
  Age: 20 Decade
  Sex: Male

DRUGS (2)
  1. ABILIFY [Suspect]
     Indication: AGITATION
  2. COCAINE [Concomitant]

REACTIONS (4)
  - DIZZINESS [None]
  - HYPERTENSION [None]
  - NAUSEA [None]
  - PRURITUS [None]
